FAERS Safety Report 25100272 (Version 1)
Quarter: 2025Q1

REPORT INFORMATION
  Report Type: Spontaneous
  Country: US (occurrence: US)
  Receive Date: 20250320
  Receipt Date: 20250320
  Transmission Date: 20250408
  Serious: Yes (Life-Threatening, Hospitalization)
  Sender: AUROBINDO
  Company Number: US-MLMSERVICE-20250226-PI430485-00312-1

PATIENT
  Age: 41 Year
  Sex: Male

DRUGS (1)
  1. TESTOSTERONE [Suspect]
     Active Substance: TESTOSTERONE
     Indication: Blood testosterone decreased
     Route: 058

REACTIONS (1)
  - Hair follicle tumour benign [Unknown]

NARRATIVE: CASE EVENT DATE: 20240101
